FAERS Safety Report 6954997-6 (Version None)
Quarter: 2010Q3

REPORT INFORMATION
  Report Type: 
  Country: None (occurrence: None)
  Receive Date: 20100830
  Receipt Date: 20100820
  Transmission Date: 20110219
  Serious: Yes (Other)
  Sender: FDA-Public Use
  Company Number: JP-ASTRAZENECA-2010SE10820

PATIENT
  Age: 56 Year
  Sex: Female

DRUGS (2)
  1. CRESTOR [Suspect]
     Indication: HYPERCHOLESTEROLAEMIA
     Route: 048
     Dates: start: 20090427, end: 20100311
  2. MYSLEE [Concomitant]
     Indication: INSOMNIA
     Dosage: 10MG DAILY, NUMBER OF SEPARATE DOSES UNKNOWN
     Route: 048
     Dates: start: 20090520

REACTIONS (3)
  - BLOOD CREATINE PHOSPHOKINASE INCREASED [None]
  - HAEMORRHAGE SUBCUTANEOUS [None]
  - LIVER DISORDER [None]
